FAERS Safety Report 9474180 (Version 2)
Quarter: 2013Q3

REPORT INFORMATION
  Report Type: Spontaneous
  Country: JP (occurrence: None)
  Receive Date: 20130820
  Receipt Date: 20130828
  Transmission Date: 20140515
  Serious: Yes (Death)
  Sender: FDA-Public Use
  Company Number: JP-2013-13109

PATIENT
  Age: 75 Year
  Sex: Female
  Weight: 49.1 kg

DRUGS (18)
  1. TOLVAPTAN [Suspect]
     Indication: BILE DUCT CANCER
     Route: 048
     Dates: start: 20130806, end: 20130806
  2. FENTOS [Concomitant]
  3. OXINORM [Concomitant]
  4. BETAMETHASONE [Concomitant]
  5. CELECOX [Concomitant]
  6. TAKEPRON [Concomitant]
  7. FUROSEMIDE [Concomitant]
  8. PLAVIX [Concomitant]
  9. ZYPREXA [Concomitant]
  10. BROTIZOLAM [Concomitant]
  11. MONILIC [Concomitant]
  12. DEQUALINIUM CHLORIDE [Concomitant]
  13. BESOFTEN [Concomitant]
  14. AZULENE [Concomitant]
  15. MIDAZOLAM [Concomitant]
  16. LINTON [Concomitant]
  17. HICORT [Concomitant]
  18. SODIUM PICOSULFATE [Concomitant]

REACTIONS (14)
  - Somnolence [None]
  - Delirium [None]
  - Bile duct cancer recurrent [None]
  - Oedema peripheral [None]
  - Movement disorder [None]
  - Breath sounds abnormal [None]
  - Renal impairment [None]
  - Hepatic function abnormal [None]
  - Condition aggravated [None]
  - Oxygen saturation decreased [None]
  - Blood pressure decreased [None]
  - Dehydration [None]
  - Malignant neoplasm progression [None]
  - Mouth breathing [None]
